FAERS Safety Report 4445193-5 (Version None)
Quarter: 2004Q3

REPORT INFORMATION
  Report Type: 
  Country: None (occurrence: None)
  Receive Date: 20040903
  Receipt Date: 20040819
  Transmission Date: 20050211
  Serious: Yes (Other)
  Sender: FDA-Public Use
  Company Number: 2004-00383

PATIENT
  Age: 60 Year
  Sex: Female

DRUGS (1)
  1. VELCADE [Suspect]
     Indication: MULTIPLE MYELOMA
     Dates: start: 20040601, end: 20040706

REACTIONS (5)
  - ALOPECIA [None]
  - DYSPNOEA [None]
  - GENERALISED OEDEMA [None]
  - PALPITATIONS [None]
  - WHEEZING [None]
